FAERS Safety Report 13948963 (Version 1)
Quarter: 2017Q3

REPORT INFORMATION
  Report Type: Report from Study
  Country: US (occurrence: MX)
  Receive Date: 20170908
  Receipt Date: 20170908
  Transmission Date: 20171128
  Serious: Yes (Other)
  Sender: FDA-Public Use
  Company Number: US-SUNOVION-2017SUN003945

PATIENT
  Sex: Female
  Weight: 112 kg

DRUGS (10)
  1. KETLUR [Concomitant]
  2. KETOROLACO [Concomitant]
  3. MIFLONIDE [Suspect]
     Active Substance: BUDESONIDE
     Indication: CHRONIC OBSTRUCTIVE PULMONARY DISEASE
     Dosage: 1 DF, QN
     Route: 055
     Dates: start: 2006
  4. TEGRETOL [Suspect]
     Active Substance: CARBAMAZEPINE
     Indication: BIPOLAR DISORDER
     Dosage: 3 DF, QD
     Route: 065
     Dates: start: 1999
  5. INDACATEROL AND GLYCOPYRROLATE [Suspect]
     Active Substance: GLYCOPYRROLATE\INDACATEROL MALEATE
     Dosage: UNK
     Route: 055
     Dates: start: 2006
  6. IMPLICANE [Concomitant]
  7. OMEPRAZOLE. [Concomitant]
     Active Substance: OMEPRAZOLE
  8. TEGRETOL [Suspect]
     Active Substance: CARBAMAZEPINE
     Dosage: 1 DF, Q8H
     Route: 048
     Dates: start: 2000
  9. GALVUS MET [Suspect]
     Active Substance: METFORMIN HYDROCHLORIDE\VILDAGLIPTIN
     Indication: DIABETES MELLITUS
     Dosage: 1 DF, QD
     Route: 048
     Dates: start: 2007
  10. TENORETIC [Concomitant]
     Active Substance: ATENOLOL\CHLORTHALIDONE

REACTIONS (4)
  - Benign ear neoplasm [Recovered/Resolved]
  - Diabetes mellitus [Recovering/Resolving]
  - Chronic obstructive pulmonary disease [Recovering/Resolving]
  - Cholelithiasis [Recovered/Resolved]

NARRATIVE: CASE EVENT DATE: 2006
